FAERS Safety Report 4358376-X (Version None)
Quarter: 2004Q2

REPORT INFORMATION
  Report Type: 
  Country: None (occurrence: None)
  Receive Date: 20040512
  Receipt Date: 20040512
  Transmission Date: 20050107
  Serious: Yes (Death, Hospitalization)
  Sender: FDA-Public Use
  Company Number: None

PATIENT
  Sex: Male
  Weight: 89.4 kg

DRUGS (8)
  1. XELODA [Suspect]
     Indication: PANCREATIC CARCINOMA
     Dosage: 2000MG/M2 TWICE A DAY
     Dates: start: 20040421, end: 20040505
  2. TARCEVA [Suspect]
     Indication: PANCREATIC CARCINOMA
     Dosage: 150 MG DAILY PO
     Route: 048
     Dates: start: 20040421, end: 20040506
  3. OXYCONTIN [Concomitant]
  4. ALDACTONE [Concomitant]
  5. VIOXX [Concomitant]
  6. OXYCODONE [Concomitant]
  7. COMPAZINE [Concomitant]
  8. ALPRAZOLAM [Concomitant]

REACTIONS (5)
  - ABDOMINAL PAIN [None]
  - ANOREXIA [None]
  - ASCITES [None]
  - DISEASE PROGRESSION [None]
  - FAILURE TO THRIVE [None]
